FAERS Safety Report 17574754 (Version 3)
Quarter: 2020Q2

REPORT INFORMATION
  Report Type: Report from Study
  Country: US (occurrence: US)
  Receive Date: 20200324
  Receipt Date: 20200518
  Transmission Date: 20200713
  Serious: Yes (Hospitalization, Other)
  Sender: FDA-Public Use
  Company Number: NVSC2020US082389

PATIENT
  Sex: Female

DRUGS (1)
  1. PIQRAY [Suspect]
     Active Substance: ALPELISIB
     Indication: PRODUCT USED FOR UNKNOWN INDICATION
     Dosage: UNK
     Route: 048

REACTIONS (11)
  - Nausea [Unknown]
  - Pyrexia [Unknown]
  - Rash vesicular [Unknown]
  - Rash [Unknown]
  - Eye disorder [Unknown]
  - Oral mucosal blistering [Unknown]
  - Appetite disorder [Unknown]
  - Nasopharyngitis [Unknown]
  - Diarrhoea [Unknown]
  - Stevens-Johnson syndrome [Unknown]
  - Vomiting [Unknown]
